FAERS Safety Report 14955716 (Version 2)
Quarter: 2018Q2

REPORT INFORMATION
  Report Type: Report from Study
  Country: US (occurrence: US)
  Receive Date: 20180531
  Receipt Date: 20180612
  Transmission Date: 20180711
  Serious: Yes (Hospitalization)
  Sender: FDA-Public Use
  Company Number: US-ROCHE-2130885

PATIENT
  Age: 45 Year
  Sex: Male
  Weight: 83 kg

DRUGS (3)
  1. BEVACIZUMAB. [Suspect]
     Active Substance: BEVACIZUMAB
     Indication: RENAL CELL CARCINOMA
     Route: 042
     Dates: start: 20180510
  2. ENTINOSTAT [Suspect]
     Active Substance: ENTINOSTAT
     Indication: RENAL CELL CARCINOMA
     Route: 048
     Dates: start: 20180510, end: 20180517
  3. ATEZOLIZUMAB. [Suspect]
     Active Substance: ATEZOLIZUMAB
     Indication: RENAL CELL CARCINOMA
     Route: 042
     Dates: start: 20180510

REACTIONS (2)
  - Encephalitis autoimmune [Not Recovered/Not Resolved]
  - Encephalopathy [Not Recovered/Not Resolved]

NARRATIVE: CASE EVENT DATE: 20180523
